FAERS Safety Report 8119278-6 (Version None)
Quarter: 2012Q1

REPORT INFORMATION
  Report Type: 
  Country: None (occurrence: None)
  Receive Date: 20120207
  Receipt Date: 20120126
  Transmission Date: 20120608
  Serious: Yes (Other)
  Sender: FDA-Public Use
  Company Number: US-ELI_LILLY_AND_COMPANY-US201201008358

PATIENT
  Sex: Female

DRUGS (6)
  1. LAMICTAL [Concomitant]
  2. LYRICA [Concomitant]
  3. LORAZEPAM [Concomitant]
  4. FOCALIN                                 /USA/ [Concomitant]
  5. CYMBALTA [Suspect]
     Indication: MAJOR DEPRESSION
     Dosage: 20 MG, TID
     Dates: end: 20120101
  6. CYMBALTA [Suspect]
     Dosage: 20 MG, TID
     Dates: start: 20120101

REACTIONS (6)
  - INTENTIONAL DRUG MISUSE [None]
  - DRUG WITHDRAWAL SYNDROME [None]
  - RENAL FAILURE [None]
  - DEPRESSION [None]
  - MOOD ALTERED [None]
  - SUICIDAL IDEATION [None]
